FAERS Safety Report 6921145-8 (Version None)
Quarter: 2010Q3

REPORT INFORMATION
  Report Type: 
  Country: None (occurrence: None)
  Receive Date: 20100804
  Receipt Date: 20091012
  Transmission Date: 20110219
  Serious: No
  Sender: FDA-Public Use
  Company Number: 2009-4236

PATIENT
  Age: 56 Year
  Sex: Male
  Weight: 127 kg

DRUGS (8)
  1. SOMATULINE DEPOT [Suspect]
     Indication: ACROMEGALY
     Dosage: 60 MG (60 MG,1 IN 1 M), SUBCUTANEOUS
     Route: 058
     Dates: start: 20091009
  2. ANDROGEL [Concomitant]
  3. CHOLESTROL MEDICATION (CHOLESTROL- AND TRIGYCERIDE REDUCERS) [Concomitant]
  4. CELEBREX [Concomitant]
  5. LYRICA [Concomitant]
  6. AMITRIPTYLINE HYDROCHLORIDE [Concomitant]
  7. SYNTHROID [Concomitant]
  8. B 12 (CYANOCABALAMIN-TANNIN COMPLEX) [Concomitant]

REACTIONS (3)
  - DIARRHOEA [None]
  - HEADACHE [None]
  - PAIN [None]
